FAERS Safety Report 7032471-9 (Version None)
Quarter: 2010Q4

REPORT INFORMATION
  Report Type: 
  Country: None (occurrence: None)
  Receive Date: 20101007
  Receipt Date: 20100416
  Transmission Date: 20110411
  Serious: Yes (Hospitalization, Other)
  Sender: FDA-Public Use
  Company Number: DE-BRISTOL-MYERS SQUIBB COMPANY-15066640

PATIENT
  Age: 72 Year
  Sex: Female

DRUGS (2)
  1. PACLITAXEL [Suspect]
     Indication: METASTATIC NEOPLASM
     Route: 042
     Dates: start: 20100331
  2. CARBOPLATIN [Suspect]
     Indication: METASTATIC NEOPLASM
     Route: 042
     Dates: start: 20100331

REACTIONS (2)
  - DECREASED APPETITE [None]
  - NAUSEA [None]
